FAERS Safety Report 11242939 (Version 1)
Quarter: 2015Q3

REPORT INFORMATION
  Report Type: Report from Study
  Country: PT (occurrence: PT)
  Receive Date: 20150707
  Receipt Date: 20150707
  Transmission Date: 20151125
  Serious: Yes (Other)
  Sender: FDA-Public Use
  Company Number: PHHY2015PT035415

PATIENT
  Age: 27 Year
  Sex: Female

DRUGS (1)
  1. GILENYA [Suspect]
     Active Substance: FINGOLIMOD HYDROCHLORIDE
     Indication: MULTIPLE SCLEROSIS
     Dosage: 0.5 MG, QD
     Route: 048
     Dates: start: 20140528

REACTIONS (11)
  - Lymphocyte count decreased [Not Recovered/Not Resolved]
  - Hypoaesthesia oral [Recovered/Resolved]
  - White blood cell count decreased [Not Recovered/Not Resolved]
  - Insomnia [Recovering/Resolving]
  - Vitamin D decreased [Not Recovered/Not Resolved]
  - Central nervous system lesion [Not Recovered/Not Resolved]
  - Blood triglycerides increased [Not Recovered/Not Resolved]
  - Loss of bladder sensation [Recovered/Resolved]
  - Blood cholesterol increased [Not Recovered/Not Resolved]
  - Urinary tract infection [Recovered/Resolved]
  - Musculoskeletal pain [Recovering/Resolving]

NARRATIVE: CASE EVENT DATE: 201411
